FAERS Safety Report 8254675-X (Version None)
Quarter: 2012Q2

REPORT INFORMATION
  Report Type: 
  Country: None (occurrence: None)
  Receive Date: 20120403
  Receipt Date: 20120324
  Transmission Date: 20120825
  Serious: Yes (Hospitalization)
  Sender: FDA-Public Use
  Company Number: CA-ELI_LILLY_AND_COMPANY-CA201203007883

PATIENT
  Sex: Female

DRUGS (20)
  1. FORTEO [Suspect]
     Indication: OSTEOPOROSIS
     Dosage: 20 UG, QD
     Route: 058
     Dates: start: 20110108, end: 20120201
  2. LYRICA [Concomitant]
     Dosage: 75 MG, QD
  3. FENTANYL [Concomitant]
     Dosage: 25 UG, QOD
     Route: 062
  4. BACLOFEN [Concomitant]
     Dosage: 10 MG, BID
  5. FORTEO [Suspect]
     Dosage: 20 UG, QD
     Route: 058
     Dates: start: 20120311
  6. PREDNISONE TAB [Concomitant]
     Dosage: 15 MG, UNKNOWN
  7. NEXIUM [Concomitant]
     Dosage: 40 MG, BID
  8. VIAGRA [Concomitant]
     Dosage: 50 MG, BID
  9. DILAUDID [Concomitant]
     Dosage: 4 MG, TID
  10. POTASSIUM CHLORIDE [Concomitant]
     Dosage: 10 MEQ, QD
  11. DOMPERIDONE [Concomitant]
     Dosage: 20 MG, QID
  12. DOCUSATE CALCIUM [Concomitant]
     Dosage: UNK, UNKNOWN
  13. METHOTREXATE [Concomitant]
     Dosage: 20 MG, WEEKLY (1/W)
  14. ANTIBIOTICS [Concomitant]
     Dosage: UNK, UNKNOWN
  15. PROCHLORPERAZINE [Concomitant]
     Dosage: UNK, EVERY 4 HRS
  16. PENTOXIFYLLINE [Concomitant]
     Dosage: 400 MG, TID
  17. FOLIC ACID [Concomitant]
     Dosage: 4 MG, WEEKLY (1/W)
  18. FUROSEMIDE [Concomitant]
     Dosage: 60 MG, QOD
  19. COUMADIN [Concomitant]
     Dosage: 2.5 MG, UNKNOWN
  20. HYDROMORPHONE HCL [Concomitant]
     Dosage: UNK, BID

REACTIONS (2)
  - APPENDICECTOMY [None]
  - SMALL INTESTINE OPERATION [None]
